FAERS Safety Report 25496532 (Version 2)
Quarter: 2025Q3

REPORT INFORMATION
  Report Type: Spontaneous
  Country: US (occurrence: US)
  Receive Date: 20250630
  Receipt Date: 20250731
  Transmission Date: 20251021
  Serious: No
  Sender: TAKEDA
  Company Number: US-TAKEDA-2024TUS056765

PATIENT
  Sex: Female

DRUGS (3)
  1. TAKHZYRO [Suspect]
     Active Substance: LANADELUMAB-FLYO
     Indication: Immune system disorder
     Dosage: 300 MILLIGRAM, Q2WEEKS
  2. TAKHZYRO [Suspect]
     Active Substance: LANADELUMAB-FLYO
  3. TAKHZYRO [Suspect]
     Active Substance: LANADELUMAB-FLYO

REACTIONS (6)
  - Inappropriate schedule of product administration [Unknown]
  - Product distribution issue [Unknown]
  - Product use issue [Unknown]
  - Insurance issue [Unknown]
  - Product dose omission issue [Unknown]
  - Injection site reaction [Recovered/Resolved]
